FAERS Safety Report 4632729-4 (Version None)
Quarter: 2005Q2

REPORT INFORMATION
  Report Type: 
  Country: None (occurrence: None)
  Receive Date: 20050412
  Receipt Date: 20050321
  Transmission Date: 20051028
  Serious: Yes (Other)
  Sender: FDA-Public Use
  Company Number: GB-BOEHRINGER INGELHEIM PHARMACEUTICALS, INC.-2005-UK-00485UK

PATIENT
  Age: 62 Year
  Sex: Female
  Weight: 54 kg

DRUGS (5)
  1. SPIRIVA [Suspect]
     Indication: CHRONIC OBSTRUCTIVE PULMONARY DISEASE
     Route: 055
     Dates: start: 20050203, end: 20050212
  2. CO-CODAMOL [Concomitant]
     Indication: PAIN
     Dosage: 8/500 2 TABLETS PRN
     Route: 048
     Dates: start: 20050118
  3. BECLOMETHASONE [Concomitant]
     Dosage: 100MCG 2 X TWICE DAILY
     Route: 055
     Dates: start: 20020628
  4. SALBUTAMOL [Concomitant]
     Dosage: 100MCG X 2 EVERY DAY
     Route: 055
     Dates: start: 20040422
  5. PREMPAK [Concomitant]
     Route: 065
     Dates: start: 20010410

REACTIONS (3)
  - DYSPNOEA EXACERBATED [None]
  - OEDEMA MOUTH [None]
  - SWELLING FACE [None]
